FAERS Safety Report 7874558-4 (Version None)
Quarter: 2011Q4

REPORT INFORMATION
  Report Type: 
  Country: None (occurrence: None)
  Receive Date: 20111031
  Receipt Date: 20111024
  Transmission Date: 20120403
  Serious: Yes (Death, Other)
  Sender: FDA-Public Use
  Company Number: NL-CELGENEUS-114-21880-10070578

PATIENT

DRUGS (5)
  1. FLUDARABINE PHOSPHATE [Concomitant]
     Route: 065
  2. REVLIMID [Suspect]
     Dosage: 5 MILLIGRAM
     Route: 048
  3. COTRIM [Concomitant]
     Dosage: 960 MILLIGRAM
     Route: 065
  4. VALACYCLOVIR [Concomitant]
     Dosage: 1000 MILLIGRAM
     Route: 065
  5. REVLIMID [Suspect]
     Indication: MULTIPLE MYELOMA
     Dosage: 10 MILLIGRAM
     Route: 048

REACTIONS (17)
  - BREAST CANCER [None]
  - ACUTE GRAFT VERSUS HOST DISEASE IN INTESTINE [None]
  - RECTAL HAEMORRHAGE [None]
  - METABOLIC DISORDER [None]
  - PYREXIA [None]
  - PLEURAL EFFUSION [None]
  - INFECTION [None]
  - EPSTEIN-BARR VIRUS INFECTION [None]
  - ACUTE GRAFT VERSUS HOST DISEASE IN SKIN [None]
  - HAEMATOTOXICITY [None]
  - SKIN TOXICITY [None]
  - OVARIAN NEOPLASM [None]
  - TRANSPLANT FAILURE [None]
  - MULTIPLE MYELOMA [None]
  - ACUTE GRAFT VERSUS HOST DISEASE IN LIVER [None]
  - FEBRILE NEUTROPENIA [None]
  - BONE MARROW TOXICITY [None]
